FAERS Safety Report 9028710 (Version 6)
Quarter: 2014Q3

REPORT INFORMATION
  Report Type: Report from Study
  Country: ES (occurrence: ES)
  Receive Date: 20130124
  Receipt Date: 20140812
  Transmission Date: 20150326
  Serious: Yes (Hospitalization)
  Sender: FDA-Public Use
  Company Number: ES-BAYER-2013-001236

PATIENT
  Sex: Female
  Weight: 59 kg

DRUGS (3)
  1. REGORAFENIB [Suspect]
     Active Substance: REGORAFENIB
     Indication: COLORECTAL CANCER
     Dosage: CYCLE 1, 160 MG PER DAY
     Route: 048
     Dates: start: 20121215, end: 20121224
  2. OMEPRAZOL [Concomitant]
     Active Substance: OMEPRAZOLE
     Indication: PROPHYLAXIS
     Dosage: DAILY DOSE 20 MG
     Route: 048
  3. CITALOPRAM [Concomitant]
     Active Substance: CITALOPRAM HYDROBROMIDE
     Indication: DEPRESSION
     Dosage: DAILY DOSE 20 MG
     Route: 048

REACTIONS (2)
  - Thrombocytopenia [Recovering/Resolving]
  - Toxic skin eruption [Recovered/Resolved]

NARRATIVE: CASE EVENT DATE: 20121225
